FAERS Safety Report 4577104-6 (Version None)
Quarter: 2005Q1

REPORT INFORMATION
  Report Type: 
  Country: None (occurrence: None)
  Receive Date: 20050208
  Receipt Date: 20050121
  Transmission Date: 20050727
  Serious: Yes (Hospitalization)
  Sender: FDA-Public Use
  Company Number: TRP_0013_2004

PATIENT
  Age: 54 Year
  Sex: Male
  Weight: 78.0187 kg

DRUGS (6)
  1. RIBASPEHERE/RIBAVIRIN/THREE RIVERS PHARMA/200MG [Suspect]
     Indication: HEPATITIS C
     Dosage: 1000  MG QDAY PO
     Route: 048
     Dates: start: 20040804, end: 20040801
  2. PEG-INTRON [Suspect]
     Indication: HEPATITIS C
     Dosage: DF
     Dates: start: 20040804
  3. ASPIRIN [Concomitant]
  4. ATENOLOL [Concomitant]
  5. MULTI-VITAMINS [Concomitant]
  6. PLAVIX [Concomitant]

REACTIONS (1)
  - CORONARY ARTERY OCCLUSION [None]
